FAERS Safety Report 9206657 (Version 1)
Quarter: 2013Q2

REPORT INFORMATION
  Report Type: Spontaneous
  Country: CA (occurrence: None)
  Receive Date: 20130401
  Receipt Date: 20130401
  Transmission Date: 20140414
  Serious: Yes (Other)
  Sender: FDA-Public Use
  Company Number: 1648857

PATIENT
  Age: 14 Year
  Sex: Male

DRUGS (7)
  1. CYTARABINE [Suspect]
     Route: 037
  2. METHOTREXATE [Suspect]
     Route: 037
  3. (VINCRISTINE SULFATE) [Suspect]
  4. PREDNISONE [Suspect]
  5. (DAUNORUBICIN) [Concomitant]
  6. PEGASPARGASE [Concomitant]
  7. (CONCERTA) [Concomitant]

REACTIONS (5)
  - Psychotic disorder [None]
  - Hallucinations, mixed [None]
  - Agitation [None]
  - Speech disorder [None]
  - Emotional disorder [None]
